FAERS Safety Report 7350595-3 (Version None)
Quarter: 2011Q1

REPORT INFORMATION
  Report Type: 
  Country: None (occurrence: None)
  Receive Date: 20110314
  Receipt Date: 20110303
  Transmission Date: 20110831
  Serious: Yes (Hospitalization)
  Sender: FDA-Public Use
  Company Number: US-MERCK-1012USA03779

PATIENT
  Age: 59 Year
  Sex: Female

DRUGS (4)
  1. FOSAMAX [Suspect]
     Route: 048
     Dates: start: 20060101, end: 20090101
  2. HORMONES (UNSPECIFIED) [Concomitant]
     Route: 048
     Dates: start: 19800101, end: 20100101
  3. FOSAMAX [Suspect]
     Indication: OSTEOPOROSIS
     Route: 048
     Dates: start: 19960101, end: 20060101
  4. ALENDRONATE SODIUM [Suspect]
     Indication: OSTEOPOROSIS
     Route: 048
     Dates: start: 20080101, end: 20100803

REACTIONS (5)
  - VITAMIN D DEFICIENCY [None]
  - FEMUR FRACTURE [None]
  - PELVIC FRACTURE [None]
  - LOW TURNOVER OSTEOPATHY [None]
  - FALL [None]
